FAERS Safety Report 4880847-8 (Version None)
Quarter: 2005Q4

REPORT INFORMATION
  Report Type: 
  Country: None (occurrence: None)
  Receive Date: 20051223
  Receipt Date: 20051028
  Transmission Date: 20060501
  Serious: No
  Sender: FDA-Public Use
  Company Number: 05P-163-0315748-00

PATIENT
  Age: 61 Year
  Sex: Female
  Weight: 68.0396 kg

DRUGS (14)
  1. HUMIRA [Suspect]
     Indication: RHEUMATOID ARTHRITIS
     Dosage: 40 MG, 1 IN 2 WK, SUBCUTANEOUS
     Route: 058
     Dates: start: 20031101
  2. METHOTREXATE [Concomitant]
  3. FOLIC ACID [Concomitant]
  4. LISINOPRIL [Concomitant]
  5. METOPROLOL [Concomitant]
  6. CLOPIDOGREL BISULFATE [Concomitant]
  7. HYDROCHLOROTHIAZIDE [Concomitant]
  8. ACETYLSALICYLIC ACID SRT [Concomitant]
  9. ZOCOR [Concomitant]
  10. IBUPROFEN [Concomitant]
  11. OMEPRAZOLE [Concomitant]
  12. CALCIUM GLUCONATE [Concomitant]
  13. MULTIVITAMIN [Concomitant]
  14. MAGNESIUM [Concomitant]

REACTIONS (1)
  - LIMB INJURY [None]
